FAERS Safety Report 7098887-X (Version None)
Quarter: 2010Q4

REPORT INFORMATION
  Report Type: 
  Country: None (occurrence: None)
  Receive Date: 20101110
  Receipt Date: 20101110
  Transmission Date: 20110411
  Serious: No
  Sender: FDA-Public Use
  Company Number: None

PATIENT

DRUGS (1)
  1. SUFENTANIL 50MCG/ML 1ML AMP HOSPIRA [Suspect]
     Indication: ANAESTHESIA
     Dosage: EPIDURAL
     Route: 008

REACTIONS (2)
  - INCORRECT DRUG ADMINISTRATION RATE [None]
  - PAIN [None]
